FAERS Safety Report 5579310-0 (Version None)
Quarter: 2007Q4

REPORT INFORMATION
  Report Type: 
  Country: None (occurrence: None)
  Receive Date: 20071130
  Receipt Date: 20070724
  Transmission Date: 20080405
  Serious: No
  Sender: FDA-Public Use
  Company Number: US200707005979

PATIENT
  Age: 57 Year
  Sex: Female

DRUGS (3)
  1. BYETTA [Suspect]
     Indication: INSULIN-REQUIRING TYPE II DIABETES MELLITUS
     Dosage: 5 UG, 2/D, 10 UG 2/D SUBCUTANEOUS
     Route: 058
     Dates: start: 20070401, end: 20070101
  2. BYETTA [Suspect]
     Indication: INSULIN-REQUIRING TYPE II DIABETES MELLITUS
     Dosage: 5 UG, 2/D, 10 UG 2/D SUBCUTANEOUS
     Route: 058
     Dates: start: 20070601
  3. INSULIN               (INSULIN) [Concomitant]

REACTIONS (4)
  - BLOOD GLUCOSE ABNORMAL [None]
  - DIARRHOEA [None]
  - NAUSEA [None]
  - VOMITING [None]
